FAERS Safety Report 18132106 (Version 1)
Quarter: 2020Q3

REPORT INFORMATION
  Report Type: Spontaneous
  Country: IL (occurrence: IL)
  Receive Date: 20200811
  Receipt Date: 20200811
  Transmission Date: 20201103
  Serious: Yes (Death, Life-Threatening, Hospitalization, Other)
  Sender: FDA-Public Use
  Company Number: IL-MICRO LABS LIMITED-ML2020-02299

PATIENT
  Age: 68 Year
  Sex: Male

DRUGS (13)
  1. GLYPRESSIN [Concomitant]
     Active Substance: TERLIPRESSIN
     Dosage: 1.75 MCG/KG/H
     Route: 042
  2. VANCOMYCIN [Suspect]
     Active Substance: VANCOMYCIN
     Indication: SPINAL CORD INFECTION
     Dosage: DAILY DOSE OF 1 G
     Route: 042
  3. IMIPENEM AND CILASTATIN [Suspect]
     Active Substance: CILASTATIN SODIUM\IMIPENEM
     Indication: URINARY TRACT INFECTION
     Dosage: 500/500 MG EVERY 6 H (TOTAL DAILY DOSE OF 2 G)
  4. CEFTRIAXONE. [Suspect]
     Active Substance: CEFTRIAXONE
     Indication: URINARY TRACT INFECTION
     Dosage: DAILY DOSE OF 2 G
     Route: 042
  5. VERAPAMIL [Concomitant]
     Active Substance: VERAPAMIL HYDROCHLORIDE
     Route: 042
  6. ADRENALINE [Concomitant]
     Active Substance: EPINEPHRINE
     Dosage: 0.2 MCG/KG/MIN
     Route: 042
  7. CLINDAMYCIN. [Suspect]
     Active Substance: CLINDAMYCIN
     Indication: SPINAL CORD INFECTION
     Dosage: 3 DAILY DOSES OF 900 MG (TOTAL DAILY DOSE OF 2.7 G).
     Route: 042
  8. VANCOMYCIN [Suspect]
     Active Substance: VANCOMYCIN
     Indication: STAPHYLOCOCCAL INFECTION
     Dosage: DAILY DOSE OF 1 G
     Route: 042
  9. CEFAZOLIN [Suspect]
     Active Substance: CEFAZOLIN
     Indication: STAPHYLOCOCCAL INFECTION
  10. CEFAZOLIN [Suspect]
     Active Substance: CEFAZOLIN
     Indication: SPINAL CORD INFECTION
     Dosage: TWO DAILY DOSES OF 2 G (TOTAL 4 G),
     Route: 042
  11. CLINDAMYCIN. [Suspect]
     Active Substance: CLINDAMYCIN
     Indication: STAPHYLOCOCCAL INFECTION
  12. VANCOMYCIN [Suspect]
     Active Substance: VANCOMYCIN
     Indication: URINARY TRACT INFECTION
  13. INSULIN [Concomitant]
     Active Substance: INSULIN NOS
     Route: 042

REACTIONS (1)
  - Drug ineffective [Fatal]
